FAERS Safety Report 7110248-3 (Version None)
Quarter: 2010Q4

REPORT INFORMATION
  Report Type: 
  Country: None (occurrence: None)
  Receive Date: 20101117
  Receipt Date: 20101117
  Transmission Date: 20110411
  Serious: No
  Sender: FDA-Public Use
  Company Number: None

PATIENT
  Sex: Male
  Weight: 74.8435 kg

DRUGS (2)
  1. VIADUR [Suspect]
  2. LUPRON [Suspect]

REACTIONS (4)
  - DIARRHOEA [None]
  - DIZZINESS [None]
  - LOSS OF CONTROL OF LEGS [None]
  - NAUSEA [None]
